FAERS Safety Report 5156072-2 (Version None)
Quarter: 2006Q4

REPORT INFORMATION
  Report Type: 
  Country: None (occurrence: None)
  Receive Date: 20061122
  Receipt Date: 20061011
  Transmission Date: 20070319
  Serious: Yes (Hospitalization)
  Sender: FDA-Public Use
  Company Number: PHBS2006JP15967

PATIENT
  Age: 76 Year
  Sex: Female

DRUGS (7)
  1. SOLETON [Concomitant]
     Indication: PAIN
     Dosage: 240 MG/DAY
     Route: 048
     Dates: start: 20041025, end: 20041103
  2. CEFZON [Concomitant]
     Indication: POSTOPERATIVE INFECTION
     Dosage: 300 MG/DAY
     Route: 048
     Dates: start: 20041101, end: 20041107
  3. LEVOFLOXACIN [Concomitant]
     Indication: POSTOPERATIVE INFECTION
     Dosage: 300 MG/DAY
     Route: 048
     Dates: start: 20041110, end: 20041123
  4. KAMAG G [Concomitant]
     Dosage: 1.5 G/DAY
     Route: 048
     Dates: start: 20041104, end: 20041116
  5. VOLTAREN [Suspect]
     Indication: PROCEDURAL PAIN
     Dosage: 25 MG/DAY
     Route: 054
     Dates: start: 20041024, end: 20041030
  6. CEFAZOLIN SODIUM [Suspect]
     Indication: POSTOPERATIVE INFECTION
     Dosage: 1 G/DAY
     Dates: start: 20041027, end: 20041027
  7. CEFAZOLIN SODIUM [Suspect]
     Dosage: 2 G/DAY
     Dates: start: 20041028, end: 20041031

REACTIONS (7)
  - HAEMATOCRIT DECREASED [None]
  - HAEMOGLOBIN DECREASED [None]
  - INFLAMMATION [None]
  - MELAENA [None]
  - PLATELET COUNT DECREASED [None]
  - RECTAL ULCER [None]
  - RED BLOOD CELL COUNT DECREASED [None]
